FAERS Safety Report 9315578 (Version 1)
Quarter: 2013Q2

REPORT INFORMATION
  Report Type: Spontaneous
  Country: US (occurrence: US)
  Receive Date: 20130529
  Receipt Date: 20130529
  Transmission Date: 20140414
  Serious: No
  Sender: FDA-Public Use
  Company Number: US-TEVA-408277USA

PATIENT
  Age: 50 Year
  Sex: Female
  Weight: 53.57 kg

DRUGS (4)
  1. NUVIGIL [Suspect]
     Indication: DEPRESSION
     Route: 048
     Dates: start: 20130521, end: 20130521
  2. PAXIL [Concomitant]
     Indication: DEPRESSION
     Dosage: 10 MILLIGRAM DAILY;
     Route: 048
  3. REMERON [Concomitant]
     Indication: SLEEP DISORDER
  4. REMERON [Concomitant]
     Indication: DEPRESSION

REACTIONS (4)
  - Dizziness [Unknown]
  - Dizziness [Unknown]
  - Incorrect dose administered [Unknown]
  - Off label use [Unknown]
